FAERS Safety Report 16576874 (Version 1)
Quarter: 2019Q3

REPORT INFORMATION
  Report Type: Spontaneous
  Country: US (occurrence: US)
  Receive Date: 20190715
  Receipt Date: 20190715
  Transmission Date: 20191004
  Serious: No
  Sender: FDA-Public Use
  Company Number: None

PATIENT
  Age: 65 Year
  Sex: Female
  Weight: 90 kg

DRUGS (5)
  1. LEVOTHYROXINE 100MCG [Concomitant]
     Active Substance: LEVOTHYROXINE
     Dates: start: 20180514, end: 20190715
  2. BACITRACIN OPHTHALMIC OINTMENT USP [Suspect]
     Active Substance: BACITRACIN
     Indication: EYE INFECTION
     Route: 047
     Dates: start: 20190322, end: 20190323
  3. FUROSEMIDE 40MG [Concomitant]
     Active Substance: FUROSEMIDE
     Dates: start: 20180514, end: 20190715
  4. TRANDOLAPRIL 4MG [Concomitant]
     Dates: start: 20180514, end: 20190715
  5. POTASSIUM CHLORIDE ER 10 MEQ [Concomitant]
     Dates: start: 20180514, end: 20190715

REACTIONS (2)
  - Recalled product [None]
  - Eye infection [None]

NARRATIVE: CASE EVENT DATE: 20190322
